FAERS Safety Report 23186621 (Version 3)
Quarter: 2024Q2

REPORT INFORMATION
  Report Type: Spontaneous
  Country: US (occurrence: US)
  Receive Date: 20231115
  Receipt Date: 20240531
  Transmission Date: 20240716
  Serious: No
  Sender: FDA-Public Use
  Company Number: US-SANOFI-01833088

PATIENT
  Age: 61 Year
  Sex: Female

DRUGS (2)
  1. LANTUS SOLOSTAR [Suspect]
     Active Substance: INSULIN GLARGINE
     Indication: Type 2 diabetes mellitus
     Dosage: 25 UNITS IN THE MORNING AND 35 UNITS AT NIGHT BID
     Route: 065
     Dates: start: 2023
  2. LANTUS SOLOSTAR [Suspect]
     Active Substance: INSULIN GLARGINE
     Dosage: 30 UNITS IN THE MORNING AND 25 UNITS AT NIGHT BID
     Route: 065

REACTIONS (2)
  - Inappropriate schedule of product administration [Unknown]
  - Product prescribing issue [Unknown]
